FAERS Safety Report 5269756-2 (Version None)
Quarter: 2007Q1

REPORT INFORMATION
  Report Type: 
  Country: None (occurrence: None)
  Receive Date: 20070320
  Receipt Date: 20070312
  Transmission Date: 20070707
  Serious: Yes (Other)
  Sender: FDA-Public Use
  Company Number: AU-ROCHE-487287

PATIENT
  Sex: Male

DRUGS (1)
  1. ROACCUTANE [Suspect]
     Indication: DRUG USE FOR UNKNOWN INDICATION
     Route: 065
     Dates: start: 19990615

REACTIONS (3)
  - DEPENDENCE [None]
  - PARANOIA [None]
  - VISION BLURRED [None]
